FAERS Safety Report 9732594 (Version 1)
Quarter: 2013Q4

REPORT INFORMATION
  Report Type: Spontaneous
  Country: US (occurrence: None)
  Receive Date: 20131204
  Receipt Date: 20131204
  Transmission Date: 20140711
  Serious: Yes (Hospitalization)
  Sender: FDA-Public Use
  Company Number: None

PATIENT
  Age: 2 Year
  Sex: Female
  Weight: 8 kg

DRUGS (2)
  1. PROBIOTIC [Suspect]
     Indication: GASTROINTESTINAL DISORDER
     Dosage: 1 TAB DAILY ORALLY
     Route: 048
     Dates: start: 20130517, end: 20130813
  2. MICROMIRACLES VEGETARIAN DIGESTIVE ENZYME [Concomitant]

REACTIONS (4)
  - Vomiting [None]
  - Oesophageal rupture [None]
  - Enterocolitis [None]
  - Pallor [None]
